FAERS Safety Report 13230435 (Version 1)
Quarter: 2017Q1

REPORT INFORMATION
  Report Type: Spontaneous
  Country: US (occurrence: US)
  Receive Date: 20170214
  Receipt Date: 20170214
  Transmission Date: 20170428
  Serious: No
  Sender: FDA-Public Use
  Company Number: None

PATIENT
  Age: 45 Year
  Sex: Male
  Weight: 103.5 kg

DRUGS (7)
  1. XANAX [Concomitant]
     Active Substance: ALPRAZOLAM
  2. LEVOTHYROXINE. [Concomitant]
     Active Substance: LEVOTHYROXINE
  3. RISPERDAL [Suspect]
     Active Substance: RISPERIDONE
     Indication: BIPOLAR DISORDER
     Route: 048
  4. METFORMIN [Concomitant]
     Active Substance: METFORMIN HYDROCHLORIDE
  5. HUMALOG [Concomitant]
     Active Substance: INSULIN LISPRO
  6. LITHIUM. [Concomitant]
     Active Substance: LITHIUM
  7. LISINOPRIL. [Concomitant]
     Active Substance: LISINOPRIL

REACTIONS (1)
  - Tardive dyskinesia [None]

NARRATIVE: CASE EVENT DATE: 20090101
